FAERS Safety Report 18761847 (Version 1)
Quarter: 2021Q1

REPORT INFORMATION
  Report Type: Spontaneous
  Country: US (occurrence: US)
  Receive Date: 20210118
  Receipt Date: 20210118
  Transmission Date: 20210419
  Serious: Yes (Hospitalization)
  Sender: FDA-Public Use
  Company Number: None

PATIENT
  Sex: Male

DRUGS (15)
  1. ATOVAQUONE. [Concomitant]
     Active Substance: ATOVAQUONE
  2. FOLIC ACID. [Concomitant]
     Active Substance: FOLIC ACID
  3. KLOR?CON [Concomitant]
     Active Substance: POTASSIUM CHLORIDE
  4. TRAMADOL HCL [Concomitant]
     Active Substance: TRAMADOL HYDROCHLORIDE
  5. PROMACTA [Suspect]
     Active Substance: ELTROMBOPAG OLAMINE
     Indication: ACUTE MYELOID LEUKAEMIA
     Route: 048
     Dates: start: 20201120
  6. LACTULOSE. [Concomitant]
     Active Substance: LACTULOSE
  7. LEVOFLOXACIN. [Concomitant]
     Active Substance: LEVOFLOXACIN
  8. JANUVIA [Concomitant]
     Active Substance: SITAGLIPTIN PHOSPHATE
  9. NITROFURANTIN [Concomitant]
     Active Substance: NITROFURANTOIN
  10. POT CHLORIDE ER [Concomitant]
  11. ISOSORB MONO [Concomitant]
     Active Substance: ISOSORBIDE MONONITRATE
  12. PANTOPRAZOLE [Concomitant]
     Active Substance: PANTOPRAZOLE
  13. VALACYCLOVIR [Concomitant]
     Active Substance: VALACYCLOVIR HYDROCHLORIDE
  14. LEVOTHYROXIN [Concomitant]
     Active Substance: LEVOTHYROXINE
  15. LANTUS SOLOS [Concomitant]

REACTIONS (2)
  - Therapy interrupted [None]
  - Chemotherapy [None]
